FAERS Safety Report 6302299-3 (Version None)
Quarter: 2009Q3

REPORT INFORMATION
  Report Type: 
  Country: None (occurrence: None)
  Receive Date: 20090810
  Receipt Date: 20090727
  Transmission Date: 20100115
  Serious: Yes (Life-Threatening)
  Sender: FDA-Public Use
  Company Number: GB-PFIZER INC-2009225053

PATIENT
  Age: 50 Year

DRUGS (5)
  1. CHAMPIX [Suspect]
     Dosage: 1 MG, 2X/DAY
     Route: 048
     Dates: start: 20090403, end: 20090515
  2. AMITRIPTYLINE [Concomitant]
     Indication: NECK PAIN
     Dosage: 25 MG, UNK
     Route: 048
     Dates: start: 20030301
  3. DOXYCYCLINE [Concomitant]
     Indication: ROSACEA
     Dosage: 50 MG, UNK
     Dates: start: 20080301
  4. CLIMAGEST [Concomitant]
     Indication: HORMONE REPLACEMENT THERAPY
     Dosage: UNK
     Dates: start: 20080501
  5. ACETAMINOPHEN W/ CODEINE [Concomitant]

REACTIONS (5)
  - AGITATION [None]
  - EMOTIONAL DISTRESS [None]
  - RESTLESSNESS [None]
  - SELF-INJURIOUS IDEATION [None]
  - SUICIDAL IDEATION [None]
